FAERS Safety Report 8074551-5 (Version None)
Quarter: 2012Q1

REPORT INFORMATION
  Report Type: 
  Country: None (occurrence: None)
  Receive Date: 20120126
  Receipt Date: 20120119
  Transmission Date: 20120608
  Serious: Yes (Death, Hospitalization, Other)
  Sender: FDA-Public Use
  Company Number: US-ELI_LILLY_AND_COMPANY-US201201005894

PATIENT
  Sex: Male

DRUGS (18)
  1. ASPIRIN [Concomitant]
  2. SPIRIVA [Concomitant]
  3. VITAMIN TAB [Concomitant]
  4. COREG [Concomitant]
  5. HYDRALAZINE HCL [Concomitant]
  6. INTEGRILIN [Concomitant]
  7. SODIUM BICARBONATE [Concomitant]
  8. LASIX [Concomitant]
  9. FLUZONE [Concomitant]
  10. POTASSIUM CHLORIDE [Concomitant]
     Dosage: 10 MG, UNK
  11. SODIUM CHLORIDE [Concomitant]
  12. DIGOXIN [Concomitant]
  13. MUCOMYST [Concomitant]
     Dosage: UNK, BID
     Route: 048
  14. EFFIENT [Suspect]
     Indication: STENT PLACEMENT
     Dosage: UNK, LOADING DOSE
     Dates: start: 20120110
  15. COUMADIN [Concomitant]
  16. LIPITOR [Concomitant]
  17. IMDUR [Concomitant]
  18. HEPARIN [Concomitant]

REACTIONS (2)
  - CEREBRAL HAEMORRHAGE [None]
  - INFARCTION [None]
